FAERS Safety Report 8990330 (Version 2)
Quarter: 2013Q2

REPORT INFORMATION
  Report Type: Spontaneous
  Country: US (occurrence: US)
  Receive Date: 20121228
  Receipt Date: 20130424
  Transmission Date: 20140414
  Serious: Yes (Hospitalization, Other)
  Sender: FDA-Public Use
  Company Number: US-ELI_LILLY_AND_COMPANY-US201210003112

PATIENT
  Age: 94 Year
  Sex: Female
  Weight: 50.34 kg

DRUGS (2)
  1. FORTEO [Suspect]
     Indication: OSTEOPOROSIS
     Dosage: 20 UG, QD
     Route: 058
     Dates: start: 20120923
  2. FORTEO [Suspect]
     Dosage: 20 UG, QD
     Route: 058
     Dates: end: 20121118

REACTIONS (17)
  - Myocardial infarction [Unknown]
  - Angina pectoris [Unknown]
  - Influenza like illness [Unknown]
  - Chest discomfort [Recovering/Resolving]
  - Head discomfort [Unknown]
  - Feeling abnormal [Unknown]
  - Productive cough [Recovering/Resolving]
  - Cough [Recovering/Resolving]
  - Eczema [Unknown]
  - Headache [Unknown]
  - Pain in extremity [Unknown]
  - Palpitations [Unknown]
  - Stress [Unknown]
  - Grief reaction [Unknown]
  - Anxiety [Unknown]
  - Malaise [Unknown]
  - Inappropriate schedule of drug administration [Unknown]
